FAERS Safety Report 7812747-5 (Version None)
Quarter: 2011Q4

REPORT INFORMATION
  Report Type: 
  Country: None (occurrence: None)
  Receive Date: 20111013
  Receipt Date: 20111011
  Transmission Date: 20120403
  Serious: No
  Sender: FDA-Public Use
  Company Number: US-B.I. PHARMACEUTICALS,INC./RIDGEFIELD-2011-BP-24037BP

PATIENT
  Sex: Female

DRUGS (6)
  1. PRADAXA [Suspect]
     Indication: ATRIAL FIBRILLATION
     Dosage: 300 MG
     Route: 048
     Dates: start: 20110923
  2. CALCIUM CARBONATE [Concomitant]
     Indication: SUPPLEMENTATION THERAPY
  3. SPIRONOLACTONE [Concomitant]
     Indication: BLOOD PRESSURE
  4. FLECAINIDE ACETATE [Concomitant]
     Indication: ATRIAL FIBRILLATION
  5. VIT D 3 [Concomitant]
     Indication: MIGRAINE
  6. MULTIVITAMIN [Concomitant]
     Indication: MACULAR DEGENERATION

REACTIONS (2)
  - PAIN [None]
  - ARTHRALGIA [None]
